FAERS Safety Report 9607810 (Version 1)
Quarter: 2013Q4

REPORT INFORMATION
  Report Type: Spontaneous
  Country: US (occurrence: US)
  Receive Date: 20131009
  Receipt Date: 20131009
  Transmission Date: 20140711
  Serious: Yes (Hospitalization)
  Sender: FDA-Public Use
  Company Number: US-INCYTE CORPORATION-2013IN002328

PATIENT
  Age: 55 Year
  Sex: Female

DRUGS (6)
  1. JAKAFI [Suspect]
     Dosage: 25 MG, BID
     Route: 048
     Dates: start: 201212
  2. MAXALT MLT [Concomitant]
     Dosage: 10 MG
  3. PREDNISONE [Concomitant]
     Dosage: 10 MG
  4. VALACYCLOVIR HCL [Concomitant]
     Dosage: 500 MG
  5. SYNTHROID [Concomitant]
     Dosage: 88 MCG
  6. GABAPENTIN [Concomitant]
     Dosage: 300 MG

REACTIONS (1)
  - Myeloid leukaemia [Unknown]
